FAERS Safety Report 13010676 (Version 3)
Quarter: 2016Q4

REPORT INFORMATION
  Report Type: Spontaneous
  Country: US (occurrence: US)
  Receive Date: 20161208
  Receipt Date: 20161223
  Transmission Date: 20170207
  Serious: Yes (Other)
  Sender: FDA-Public Use
  Company Number: US-ALLERGAN-1679624US

PATIENT
  Age: 86 Year
  Sex: Female

DRUGS (1)
  1. LUMIGAN [Suspect]
     Active Substance: BIMATOPROST
     Indication: EYE DISORDER
     Dosage: UNK
     Route: 047
     Dates: start: 1998

REACTIONS (10)
  - Anxiety [Not Recovered/Not Resolved]
  - Blindness unilateral [Unknown]
  - Back disorder [Unknown]
  - Cataract [Unknown]
  - Off label use [Unknown]
  - Macular degeneration [Unknown]
  - Drug dose omission [Unknown]
  - Cerebrovascular accident [Unknown]
  - Arthropathy [Unknown]
  - Stress [Not Recovered/Not Resolved]

NARRATIVE: CASE EVENT DATE: 2014
